FAERS Safety Report 7394883-3 (Version None)
Quarter: 2011Q2

REPORT INFORMATION
  Report Type: 
  Country: None (occurrence: None)
  Receive Date: 20110405
  Receipt Date: 20110329
  Transmission Date: 20111010
  Serious: Yes (Hospitalization)
  Sender: FDA-Public Use
  Company Number: B0586642A

PATIENT
  Sex: Female
  Weight: 48 kg

DRUGS (16)
  1. PYDOXAL [Concomitant]
     Indication: PROPHYLAXIS
     Route: 048
     Dates: start: 20090716
  2. GASTER D [Concomitant]
     Route: 048
     Dates: start: 20090716
  3. NAUZELIN [Concomitant]
     Indication: NAUSEA
     Route: 048
     Dates: start: 20090928, end: 20091009
  4. TYKERB [Suspect]
     Indication: BREAST CANCER
     Dosage: 1250MG PER DAY
     Route: 048
     Dates: start: 20090716
  5. VOLTAREN [Concomitant]
     Indication: PAIN IN EXTREMITY
     Route: 048
     Dates: start: 20090716, end: 20091009
  6. LOXONIN [Concomitant]
     Indication: PAIN IN EXTREMITY
     Route: 048
     Dates: start: 20090928, end: 20091009
  7. SELBEX [Concomitant]
     Route: 048
     Dates: start: 20090928, end: 20091009
  8. TRYPTANOL [Concomitant]
     Indication: PAIN IN EXTREMITY
     Route: 048
     Dates: start: 20090716
  9. GABAPENTIN [Concomitant]
     Indication: PAIN IN EXTREMITY
     Route: 048
     Dates: start: 20090716
  10. OXYCONTIN [Concomitant]
     Indication: PAIN IN EXTREMITY
     Route: 048
     Dates: start: 20090914
  11. LOPEMIN [Concomitant]
     Route: 048
     Dates: start: 20090806, end: 20090812
  12. CHINESE MEDICINE [Concomitant]
     Indication: NAUSEA
     Route: 048
     Dates: start: 20090806, end: 20090812
  13. RIVOTRIL [Concomitant]
     Indication: PAIN IN EXTREMITY
     Route: 048
     Dates: start: 20090716
  14. PARIET [Concomitant]
     Indication: DUODENAL ULCER
     Route: 048
     Dates: start: 20091112, end: 20091125
  15. XELODA [Concomitant]
     Route: 048
     Dates: start: 20090716
  16. NOVAMINE [Concomitant]
     Indication: NAUSEA
     Route: 048
     Dates: start: 20090806, end: 20090812

REACTIONS (2)
  - DIARRHOEA [None]
  - DRUG ERUPTION [None]
